FAERS Safety Report 10822147 (Version 2)
Quarter: 2015Q2

REPORT INFORMATION
  Report Type: Spontaneous
  Country: US (occurrence: None)
  Receive Date: 20150213
  Receipt Date: 20150401
  Transmission Date: 20150821
  Serious: Yes (Life-Threatening, Hospitalization, Other)
  Sender: FDA-Public Use
  Company Number: ADR-2015-00304

PATIENT
  Age: 57 Year
  Sex: Male

DRUGS (3)
  1. DILAUDID [Suspect]
     Active Substance: HYDROMORPHONE HYDROCHLORIDE
     Indication: PAIN
  2. COMPOUNDED BACLOFEN [Suspect]
     Active Substance: BACLOFEN
     Indication: PAIN
  3. BUPIVACAINE [Suspect]
     Active Substance: BUPIVACAINE

REACTIONS (6)
  - Device related sepsis [None]
  - Delirium [None]
  - Dyspnoea [None]
  - Back pain [None]
  - Implant site infection [None]
  - Septic shock [None]

NARRATIVE: CASE EVENT DATE: 20150201
